FAERS Safety Report 5201709-2 (Version None)
Quarter: 2006Q4

REPORT INFORMATION
  Report Type: 
  Country: None (occurrence: None)
  Receive Date: 20061012
  Receipt Date: 20051212
  Transmission Date: 20070319
  Serious: Yes (Hospitalization)
  Sender: FDA-Public Use
  Company Number: 13120

PATIENT
  Age: 74 Year
  Sex: Male
  Weight: 75.8 kg

DRUGS (13)
  1. METHOTREXATE [Suspect]
     Indication: RHEUMATOID ARTHRITIS
     Dosage: 25 MG WEEKLY ST
     Dates: start: 20001004
  2. NIACIN [Suspect]
     Dosage: 500 MG DAILY PO
     Route: 048
     Dates: start: 20020528, end: 20040714
  3. PREDNISONE [Concomitant]
  4. REMICADE [Concomitant]
  5. VITAMIN D [Concomitant]
  6. SALSALATE [Concomitant]
  7. CLOPIDOGREL [Concomitant]
  8. DILTIAZEM HCL [Concomitant]
  9. FOLATE SODIUM [Concomitant]
  10. HYDROCHLOROTHIAZIDE [Concomitant]
  11. RABEPRAZOLE SODIUM [Concomitant]
  12. POTASSIUM ACETATE [Concomitant]
  13. PAMIDRONATE DISODIUM [Concomitant]

REACTIONS (1)
  - HEPATITIS [None]
